FAERS Safety Report 17106250 (Version 1)
Quarter: 2019Q4

REPORT INFORMATION
  Report Type: Report from Study
  Country: US (occurrence: US)
  Receive Date: 20191203
  Receipt Date: 20191203
  Transmission Date: 20200122
  Serious: Yes (Hospitalization, Other)
  Sender: FDA-Public Use
  Company Number: US-ROCHE-2421101

PATIENT
  Age: 74 Year
  Sex: Female
  Weight: 61.6 kg

DRUGS (3)
  1. ATEZOLIZUMAB. [Suspect]
     Active Substance: ATEZOLIZUMAB
     Indication: OVARIAN CANCER
     Dosage: LAST ADMINISTERED DATE: 16/APR/2019
     Route: 042
     Dates: start: 20190305
  2. BEVACIZUMAB. [Suspect]
     Active Substance: BEVACIZUMAB
     Indication: OVARIAN CANCER
     Dosage: LAST ADMINISTERED DATE: 16/APR/2019
     Route: 042
     Dates: start: 20190305
  3. LIPOSOMAL DOXORUBICIN HYDROCHLORIDE [Suspect]
     Active Substance: DOXORUBICIN HYDROCHLORIDE
     Indication: OVARIAN CANCER
     Dosage: LAST ADMINISTERED DATE: 03/MAY/2019
     Route: 042
     Dates: start: 20190305

REACTIONS (2)
  - Proteinuria [Recovering/Resolving]
  - Cardiac failure [Unknown]

NARRATIVE: CASE EVENT DATE: 20190508
